FAERS Safety Report 5792571-8 (Version None)
Quarter: 2008Q2

REPORT INFORMATION
  Report Type: 
  Country: None (occurrence: None)
  Receive Date: 20080626
  Receipt Date: 20080616
  Transmission Date: 20081010
  Serious: Yes (Other)
  Sender: FDA-Public Use
  Company Number: US-PFIZER INC-2008036410

PATIENT
  Sex: Female

DRUGS (14)
  1. DOXYCYCLINE [Suspect]
     Indication: LYME DISEASE
     Route: 042
     Dates: start: 20070813, end: 20070914
  2. ACETYLCARNITINE [Concomitant]
  3. UBIDECARENONE [Concomitant]
  4. ALPHA LIPOIC ACID [Concomitant]
  5. PHOSPHOSERINE [Concomitant]
  6. ACETYLCYSTEINE [Concomitant]
  7. PHOSPHATIDYL CHOLINE [Concomitant]
  8. NIFEREX [Concomitant]
  9. VITAMIN D3 [Concomitant]
  10. ALL OTHER THERAPEUTIC PRODUCTS [Concomitant]
  11. IRON [Concomitant]
  12. SUPER VITAMIN B COMPLEX [Concomitant]
  13. MAGNESIUM CITRATE [Concomitant]
  14. DOCOSAHEXAENOIC ACID(DHA)/EICOSAPENTAENOIC ACID(EPA)/TOCOPHEROL [Concomitant]

REACTIONS (11)
  - ABDOMINAL DISTENSION [None]
  - ABDOMINAL PAIN [None]
  - BODY TEMPERATURE FLUCTUATION [None]
  - CHILLS [None]
  - DIARRHOEA [None]
  - DISTURBANCE IN ATTENTION [None]
  - ERYTHEMA [None]
  - GASTRITIS [None]
  - INSOMNIA [None]
  - MULTIPLE SCLEROSIS [None]
  - NAUSEA [None]
